FAERS Safety Report 8492128-4 (Version None)
Quarter: 2012Q3

REPORT INFORMATION
  Report Type: 
  Country: None (occurrence: None)
  Receive Date: 20120706
  Receipt Date: 20120629
  Transmission Date: 20120928
  Serious: Yes (Hospitalization)
  Sender: FDA-Public Use
  Company Number: US-AMGEN-USASP2011068544

PATIENT
  Age: 59 Year
  Sex: Female
  Weight: 119.73 kg

DRUGS (36)
  1. LEVETIRACETAM [Concomitant]
     Dosage: 500 MG, BID
     Route: 048
  2. DEXAMETHASONE SODIUM PHOSPHATE [Concomitant]
     Dosage: UNK
  3. XGEVA [Suspect]
     Indication: METASTASES TO BONE
     Dosage: 120 MG, Q4WK
     Route: 058
     Dates: start: 20111220
  4. DIPHENOXYLATE HCL + ATROPINE SULFATE [Concomitant]
     Dosage: 2.5 MG, PRN
     Route: 048
  5. LEVOTHYROXINE SODIUM [Concomitant]
     Dosage: 100 MUG, QD
     Route: 048
  6. LOSARTAN POTASSIUM [Concomitant]
     Dosage: 50 MG, QD
     Route: 048
  7. ROPINIROLE [Concomitant]
     Dosage: 0.5 MG, QD
     Route: 048
  8. PROCHLORPERAZINE MALEATE [Concomitant]
     Indication: NAUSEA
     Dosage: 10 MG, PRN
     Route: 048
  9. BENADRYL [Concomitant]
     Dosage: UNK
  10. HYDROCORTISONE SODIUM SUCCINATE [Concomitant]
     Dosage: UNK
  11. ASPIRIN [Concomitant]
     Dosage: 81 MG, QD
     Route: 048
  12. OMEPRAZOLE [Concomitant]
     Dosage: 20 MG, QD
     Route: 048
  13. NEURONTIN [Concomitant]
     Dosage: 300 MG, BID
     Route: 048
  14. SIMVASTATIN [Concomitant]
     Dosage: 20 MG, QHS
     Route: 048
  15. LOTRIMIN                           /00212501/ [Concomitant]
     Dosage: UNK UNK, BID
     Route: 061
  16. OXYCONTIN [Concomitant]
     Dosage: 20 MG, Q12H
     Route: 048
  17. ZOFRAN [Concomitant]
     Dosage: 8 MG, Q8H
     Route: 048
  18. METHYLPREDNISOLONE [Concomitant]
     Dosage: UNK
  19. VINORELBINE TART [Concomitant]
     Dosage: UNK
     Dates: start: 20120405
  20. NYSTATIN [Concomitant]
     Dosage: 5 ML, TID
     Route: 048
  21. REGLAN [Concomitant]
     Indication: NAUSEA
     Dosage: 10 MG, PRN
     Route: 048
  22. GRANISETRON  HCL [Concomitant]
     Dosage: UNK
  23. CAPECITABINE [Concomitant]
     Dosage: UNK
     Dates: start: 20120109
  24. LORAZEPAM [Concomitant]
     Dosage: UNK
     Dates: start: 20120326
  25. FISH OIL [Concomitant]
     Dosage: 360 MG, QD
     Route: 048
  26. OXYBUTYNIN CHLORIDE [Concomitant]
     Dosage: 5 MG, BID
     Route: 048
  27. VENLAFAXINE HCL [Concomitant]
     Dosage: 37.5 MG, QD
     Route: 048
  28. TRASTUZUMAB [Concomitant]
     Dosage: UNK
     Dates: start: 20120405
  29. CARVEDILOL [Concomitant]
     Dosage: 25 MG, BID
     Route: 048
  30. MUPIROCIN [Concomitant]
     Dosage: 1 IU, BID
     Route: 061
  31. NEXIUM [Concomitant]
     Dosage: 40 MG, QD
     Route: 048
  32. VICODIN ES [Concomitant]
     Indication: PAIN
     Dosage: 7.5 MG, PRN
     Route: 048
  33. CALCIUM 600 + D [Concomitant]
     Dosage: 600 MG, BID
     Route: 048
  34. LAPATINIB DITOSYLATE ANHYDROUS [Concomitant]
     Dosage: UNK
     Dates: start: 20120109
  35. SODIUM CHLORIDE [Concomitant]
     Dosage: UNK
     Route: 042
     Dates: start: 20120320
  36. POTASSIUM CHLORIDE [Concomitant]
     Dosage: UNK
     Dates: start: 20120517

REACTIONS (5)
  - DYSARTHRIA [None]
  - DISTURBANCE IN ATTENTION [None]
  - NERVOUS SYSTEM DISORDER [None]
  - HYPOAESTHESIA [None]
  - CEREBROVASCULAR ACCIDENT [None]
